FAERS Safety Report 5600907-3 (Version None)
Quarter: 2008Q1

REPORT INFORMATION
  Report Type: 
  Country: None (occurrence: None)
  Receive Date: 20080124
  Receipt Date: 20080117
  Transmission Date: 20080703
  Serious: Yes (Other)
  Sender: FDA-Public Use
  Company Number: ES-JNJFOC-20080103793

PATIENT
  Age: 56 Year
  Sex: Female

DRUGS (1)
  1. TOPAMAX [Suspect]
     Indication: DRUG USE FOR UNKNOWN INDICATION
     Route: 048

REACTIONS (9)
  - ABDOMINAL PAIN [None]
  - AGGRESSION [None]
  - CHILLS [None]
  - COUGH [None]
  - DEPRESSION [None]
  - DISTURBANCE IN ATTENTION [None]
  - DYSGEUSIA [None]
  - NAUSEA [None]
  - VOMITING [None]
